FAERS Safety Report 23326593 (Version 2)
Quarter: 2023Q4

REPORT INFORMATION
  Report Type: Spontaneous
  Country: CH (occurrence: CH)
  Receive Date: 20231221
  Receipt Date: 20231229
  Transmission Date: 20240109
  Serious: Yes (Hospitalization, Other)
  Sender: FDA-Public Use
  Company Number: CH-JAZZ PHARMACEUTICALS-2023-CH-021635

PATIENT
  Age: 54 Year
  Sex: Male

DRUGS (6)
  1. ZEPZELCA [Suspect]
     Active Substance: LURBINECTEDIN
     Indication: Small cell lung cancer metastatic
     Dosage: 3.2 MILLIGRAM/SQ. METER; CYCLE 1
     Route: 042
     Dates: start: 20230705
  2. ZEPZELCA [Suspect]
     Active Substance: LURBINECTEDIN
     Dosage: 2.6 MILLIGRAM/SQ. METER; CYCLE 2
     Route: 042
     Dates: start: 20230803
  3. ZEPZELCA [Suspect]
     Active Substance: LURBINECTEDIN
     Dosage: CYCLE 3
     Route: 042
     Dates: start: 20230907
  4. ZEPZELCA [Suspect]
     Active Substance: LURBINECTEDIN
     Dosage: CYCLE 4
     Route: 042
     Dates: start: 20231005
  5. ZEPZELCA [Suspect]
     Active Substance: LURBINECTEDIN
     Dosage: 2.6 MILLIGRAM/SQ. METER; CYCLE 5
     Route: 042
     Dates: start: 20231102
  6. ZEPZELCA [Suspect]
     Active Substance: LURBINECTEDIN
     Dosage: 2 MILLIGRAM/SQ. METER, CYCLE 6
     Route: 042
     Dates: start: 20231207, end: 20231207

REACTIONS (5)
  - Thrombocytopenia [Unknown]
  - Pulmonary haemorrhage [Unknown]
  - Leukopenia [Unknown]
  - Anaemia [Unknown]
  - Off label use [Unknown]

NARRATIVE: CASE EVENT DATE: 20230701
